FAERS Safety Report 14941316 (Version 1)
Quarter: 2018Q2

REPORT INFORMATION
  Report Type: Spontaneous
  Country: ZA (occurrence: ZA)
  Receive Date: 20180526
  Receipt Date: 20180526
  Transmission Date: 20180711
  Serious: Yes (Other)
  Sender: FDA-Public Use
  Company Number: ZA-AMGEN-ZAFSP2018070915

PATIENT
  Age: 51 Year
  Sex: Male
  Weight: 83.1 kg

DRUGS (2)
  1. ARCOXIA [Suspect]
     Active Substance: ETORICOXIB
     Indication: PRODUCT USED FOR UNKNOWN INDICATION
     Dosage: UNK
     Route: 065
  2. ENBREL [Suspect]
     Active Substance: ETANERCEPT
     Indication: PRODUCT USED FOR UNKNOWN INDICATION
     Dosage: 50 MG, UNK
     Route: 058

REACTIONS (8)
  - C-reactive protein increased [Unknown]
  - Drug effect incomplete [Unknown]
  - Paraesthesia [Unknown]
  - Chest expansion decreased [Recovering/Resolving]
  - Middle insomnia [Unknown]
  - Neck pain [Unknown]
  - Blood pressure increased [Unknown]
  - Mobility decreased [Unknown]

NARRATIVE: CASE EVENT DATE: 201805
